FAERS Safety Report 22393487 (Version 1)
Quarter: 2023Q2

REPORT INFORMATION
  Report Type: Report from Study
  Country: CN (occurrence: CN)
  Receive Date: 20230601
  Receipt Date: 20230601
  Transmission Date: 20230722
  Serious: Yes (Hospitalization)
  Sender: FDA-Public Use
  Company Number: CN-JNJFOC-20230378768

PATIENT
  Age: 67 Year
  Sex: Female
  Weight: 55.3 kg

DRUGS (6)
  1. AMIVANTAMAB [Suspect]
     Active Substance: AMIVANTAMAB
     Indication: Non-small cell lung cancer metastatic
     Dosage: ALSO REPORTED AS 250 ML
     Route: 042
     Dates: start: 20220606, end: 20230310
  2. CARBOPLATIN [Concomitant]
     Active Substance: CARBOPLATIN
     Indication: Non-small cell lung cancer metastatic
     Route: 042
     Dates: start: 20211021, end: 20211223
  3. PEMETREXED [Concomitant]
     Active Substance: PEMETREXED
     Indication: Non-small cell lung cancer metastatic
     Route: 042
     Dates: start: 20211021, end: 20220504
  4. CHLORAMPHENICOL [Concomitant]
     Active Substance: CHLORAMPHENICOL
     Indication: Rash
     Route: 061
     Dates: start: 20230104, end: 20230401
  5. DESONIDE [Concomitant]
     Active Substance: DESONIDE
     Indication: Paronychia
     Route: 061
     Dates: start: 20230104, end: 20230401
  6. HALCINONIDE [Concomitant]
     Active Substance: HALCINONIDE
     Indication: Rash
     Route: 061
     Dates: start: 20230104, end: 20230401

REACTIONS (1)
  - Organising pneumonia [Recovered/Resolved]

NARRATIVE: CASE EVENT DATE: 20230328
